FAERS Safety Report 23081104 (Version 5)
Quarter: 2024Q2

REPORT INFORMATION
  Report Type: Other
  Country: CA (occurrence: CA)
  Receive Date: 20231018
  Receipt Date: 20240522
  Transmission Date: 20240716
  Serious: Yes (Life-Threatening, Hospitalization)
  Sender: FDA-Public Use
  Company Number: None

PATIENT
  Age: 3 Decade
  Sex: Male

DRUGS (59)
  1. HYDROMORPHONE HYDROCHLORIDE [Suspect]
     Active Substance: HYDROMORPHONE HYDROCHLORIDE
     Indication: Neuralgia
     Dosage: 30 MILLIGRAM, DAILY (1 EVERY 1 DAYS)
     Route: 065
  2. HYDROMORPHONE HYDROCHLORIDE [Suspect]
     Active Substance: HYDROMORPHONE HYDROCHLORIDE
     Indication: Guillain-Barre syndrome
     Dosage: 7 MILLIGRAM, DAILY (1 EVERY 1 DAYS)
     Route: 065
  3. HYDROMORPHONE HYDROCHLORIDE [Suspect]
     Active Substance: HYDROMORPHONE HYDROCHLORIDE
     Dosage: 1 MILLIGRAM (AS REQUIRED)
     Route: 042
  4. HYDROMORPHONE HYDROCHLORIDE [Suspect]
     Active Substance: HYDROMORPHONE HYDROCHLORIDE
     Dosage: 1 MILLIGRAM
     Route: 048
  5. HYDROMORPHONE HYDROCHLORIDE [Suspect]
     Active Substance: HYDROMORPHONE HYDROCHLORIDE
     Dosage: 30 MILLIGRAM
     Route: 065
  6. HYDROMORPHONE HYDROCHLORIDE [Suspect]
     Active Substance: HYDROMORPHONE HYDROCHLORIDE
     Dosage: 7 MILLIGRAM
     Route: 065
  7. ACETAMINOPHEN [Suspect]
     Active Substance: ACETAMINOPHEN
     Indication: Neuralgia
     Dosage: 3900 MILLIGRAM, DAILY (1 EVERY 1 DAYS)
     Route: 065
  8. ACETAMINOPHEN [Suspect]
     Active Substance: ACETAMINOPHEN
     Indication: Guillain-Barre syndrome
     Dosage: 2600 MILLIGRAM, DAILY (1 EVERY 1 DAYS)
     Route: 065
  9. ACETAMINOPHEN [Suspect]
     Active Substance: ACETAMINOPHEN
     Dosage: 3900 MILLIGRAM
     Route: 062
  10. ACETAMINOPHEN [Suspect]
     Active Substance: ACETAMINOPHEN
     Dosage: 2600 MILLIGRAM
     Route: 065
  11. DICLOFENAC [Suspect]
     Active Substance: DICLOFENAC
     Indication: Neuralgia
     Dosage: UNK
     Route: 065
  12. DICLOFENAC [Suspect]
     Active Substance: DICLOFENAC
     Indication: Guillain-Barre syndrome
  13. FENTANYL [Suspect]
     Active Substance: FENTANYL\FENTANYL CITRATE
     Indication: Neuralgia
     Dosage: 37.5 MICROGRAM, Q1H (1 EVERY 1 HOURS)
     Route: 065
  14. FENTANYL [Suspect]
     Active Substance: FENTANYL\FENTANYL CITRATE
     Indication: Guillain-Barre syndrome
     Dosage: 25 MICROGRAM, Q1H (1 EVERY 1 HOURS)
     Route: 065
  15. FENTANYL [Suspect]
     Active Substance: FENTANYL\FENTANYL CITRATE
     Dosage: UNK
     Route: 065
  16. FENTANYL [Suspect]
     Active Substance: FENTANYL\FENTANYL CITRATE
     Dosage: 25 MILLIGRAM, Q1H (1 EVERY 1 HOURS)
     Route: 062
  17. FENTANYL [Suspect]
     Active Substance: FENTANYL\FENTANYL CITRATE
     Dosage: 37.5 MILLIGRAM, Q1H (1 EVERY 1 HOURS)
     Route: 062
  18. GABAPENTIN [Suspect]
     Active Substance: GABAPENTIN
     Indication: Neuralgia
     Dosage: 900 MILLIGRAM, DAILY (1 EVERY 1 DAYS)
     Route: 065
  19. GABAPENTIN [Suspect]
     Active Substance: GABAPENTIN
     Indication: Guillain-Barre syndrome
     Dosage: 3600 MILLIGRAM, DAILY (1 EVERY 1 DAYS)
     Route: 065
  20. GABAPENTIN [Suspect]
     Active Substance: GABAPENTIN
     Dosage: 300 MILLIGRAM, DAILY (1 EVERY 1 DAYS)
     Route: 065
  21. GABAPENTIN [Suspect]
     Active Substance: GABAPENTIN
     Dosage: 1200 MILLIGRAM, DAILY (1 EVERY 1 DAYS)
     Route: 048
  22. GABAPENTIN [Suspect]
     Active Substance: GABAPENTIN
     Dosage: 1800 MILLIGRAM, DAILY (1 EVERY 1 DAYS)
     Route: 048
  23. GABAPENTIN [Suspect]
     Active Substance: GABAPENTIN
     Dosage: 3600 MILLIGRAM
     Route: 048
  24. GABAPENTIN [Suspect]
     Active Substance: GABAPENTIN
     Dosage: 3900 MILLIGRAM, 1 EVERY 1 DAY
     Route: 065
  25. GABAPENTIN [Suspect]
     Active Substance: GABAPENTIN
     Dosage: 300 MILLIGRAM, DAILY (1 EVERY 1 DAYS)
     Route: 048
  26. GABAPENTIN [Suspect]
     Active Substance: GABAPENTIN
     Dosage: 1200 MILLIGRAM
     Route: 065
  27. GABAPENTIN [Suspect]
     Active Substance: GABAPENTIN
     Dosage: 1800 MILLIGRAM
     Route: 065
  28. GABAPENTIN [Suspect]
     Active Substance: GABAPENTIN
     Dosage: 300 MILLIGRAM
     Route: 065
  29. GABAPENTIN [Suspect]
     Active Substance: GABAPENTIN
     Dosage: 900 MILLIGRAM
     Route: 065
  30. GABAPENTIN [Suspect]
     Active Substance: GABAPENTIN
     Dosage: 3900 MILLIGRAM
     Route: 065
  31. IBUPROFEN [Suspect]
     Active Substance: IBUPROFEN
     Indication: Neuralgia
     Dosage: 1600 MILLIGRAM, DAILY (1 EVERY 1 DAYS)
     Route: 065
  32. IBUPROFEN [Suspect]
     Active Substance: IBUPROFEN
     Indication: Guillain-Barre syndrome
     Dosage: 1600 MILLIGRAM
     Route: 042
  33. KETAMINE [Suspect]
     Active Substance: KETAMINE
     Indication: Neuralgia
     Dosage: 30 MILLIGRAM, DAILY (1 EVERY 1 DAYS)
     Route: 050
  34. KETAMINE [Suspect]
     Active Substance: KETAMINE
     Indication: Guillain-Barre syndrome
     Dosage: 40 MILLIGRAM, DAILY (1 EVERY 1 DAYS)
     Route: 050
  35. KETAMINE [Suspect]
     Active Substance: KETAMINE
     Dosage: 30 MILLIGRAM
     Route: 042
  36. KETAMINE [Suspect]
     Active Substance: KETAMINE
     Dosage: 40 MILLIGRAM
     Route: 048
  37. LIDOCAINE [Suspect]
     Active Substance: LIDOCAINE
     Indication: Neuralgia
     Dosage: 3.84 MILLIGRAM, Q1H (1 EVERY 1 HOURS)
     Route: 042
  38. LIDOCAINE [Suspect]
     Active Substance: LIDOCAINE
     Indication: Guillain-Barre syndrome
     Dosage: 3.84 MILLIGRAM
     Route: 065
  39. NABILONE [Suspect]
     Active Substance: NABILONE
     Indication: Neuralgia
     Dosage: 2 MILLIGRAM, DAILY (1 EVERY 1 DAYS)
     Route: 065
  40. NABILONE [Suspect]
     Active Substance: NABILONE
     Indication: Guillain-Barre syndrome
     Dosage: 6 MILLIGRAM, DAILY (1 EVERY 1 DAYS)
     Route: 065
  41. NABILONE [Suspect]
     Active Substance: NABILONE
     Dosage: 8 MILLIGRAM
     Route: 042
  42. NABILONE [Suspect]
     Active Substance: NABILONE
     Dosage: 2 MILLIGRAM
     Route: 065
  43. OLANZAPINE [Suspect]
     Active Substance: OLANZAPINE
     Indication: Neuralgia
     Dosage: 3 MILLIGRAM, DAILY (1 EVERY 1 DAYS)
     Route: 065
  44. OLANZAPINE [Suspect]
     Active Substance: OLANZAPINE
     Indication: Guillain-Barre syndrome
     Dosage: 2.5 MILLIGRAM, DAILY (1 EVERY 1 DAYS)
     Route: 065
  45. OLANZAPINE [Suspect]
     Active Substance: OLANZAPINE
     Dosage: 2.5 MILLIGRAM
     Route: 065
  46. OLANZAPINE [Suspect]
     Active Substance: OLANZAPINE
     Dosage: 3 MILLIGRAM
     Route: 065
  47. OLANZAPINE [Suspect]
     Active Substance: OLANZAPINE
     Dosage: 2.5 MILLIGRAM
     Route: 065
  48. PHENYTOIN [Suspect]
     Active Substance: PHENYTOIN
     Indication: Neuralgia
     Dosage: 1500 MILLIGRAM, DAILY (1 EVERY 1 DAYS)
     Route: 065
  49. PHENYTOIN [Suspect]
     Active Substance: PHENYTOIN
     Dosage: 1500 MILLIGRAM
     Route: 065
  50. ZOPICLONE [Suspect]
     Active Substance: ZOPICLONE
     Indication: Neuralgia
     Dosage: 7.5 MILLIGRAM
     Route: 065
  51. ZOPICLONE [Suspect]
     Active Substance: ZOPICLONE
     Indication: Guillain-Barre syndrome
  52. IMMUNE GLOBULIN NOS [Suspect]
     Active Substance: IMMUNE GLOBULIN NOS
     Indication: Guillain-Barre syndrome
     Dosage: 400 MG/KG
     Route: 042
  53. IMMUNE GLOBULIN NOS [Suspect]
     Active Substance: IMMUNE GLOBULIN NOS
     Dosage: 400 MILLIGRAM PER KILOGRAM, 1 EVERY 1 DAY
     Route: 042
  54. IMMUNE GLOBULIN NOS [Suspect]
     Active Substance: IMMUNE GLOBULIN NOS
     Dosage: 400 MG/KG
     Route: 065
  55. VENLAFAXINE [Suspect]
     Active Substance: VENLAFAXINE HYDROCHLORIDE
     Indication: Neuralgia
     Dosage: 75 MILLIGRAM
     Route: 065
  56. VENLAFAXINE [Suspect]
     Active Substance: VENLAFAXINE HYDROCHLORIDE
     Indication: Guillain-Barre syndrome
     Dosage: 75 MILLIGRAM, 1 EVERY 1 DAY
     Route: 065
  57. BUPIVACAINE [Concomitant]
     Active Substance: BUPIVACAINE
     Indication: Neuralgia
     Dosage: UNK
     Route: 065
  58. MORPHINE [Concomitant]
     Active Substance: MORPHINE
     Indication: Neuralgia
     Dosage: UNK
     Route: 065
  59. NORTRIPTYLINE [Concomitant]
     Active Substance: NORTRIPTYLINE
     Indication: Neuralgia
     Dosage: 35 MILLIGRAM, 1 EVERY 1 DAYS
     Route: 065

REACTIONS (4)
  - Drug ineffective [Unknown]
  - Drug ineffective for unapproved indication [Unknown]
  - Inspiratory capacity decreased [Unknown]
  - Off label use [Unknown]
